FAERS Safety Report 9096646 (Version 1)
Quarter: 2013Q1

REPORT INFORMATION
  Report Type: Spontaneous
  Country: DE (occurrence: None)
  Receive Date: 20130125
  Receipt Date: 20130125
  Transmission Date: 20140127
  Serious: Yes (Other)
  Sender: FDA-Public Use
  Company Number: TPA2013A00932

PATIENT
  Age: 45 Year
  Sex: Male

DRUGS (1)
  1. ADENURIC (FEBUXOSTAT) [Suspect]
     Route: 048
     Dates: start: 20120319, end: 20120326

REACTIONS (3)
  - Hypersensitivity [None]
  - Dyspnoea [None]
  - Rash [None]
